FAERS Safety Report 17037622 (Version 1)
Quarter: 2019Q4

REPORT INFORMATION
  Report Type: Spontaneous
  Country: US (occurrence: US)
  Receive Date: 20191112
  Receipt Date: 20191112
  Transmission Date: 20200122
  Serious: No
  Sender: FDA-Public Use
  Company Number: None

PATIENT
  Age: 48 Year
  Sex: Female

DRUGS (2)
  1. BLEPHADEX [Suspect]
     Active Substance: COCONUT OIL\COSMETICS\TEA TREE OIL
     Indication: DRY EYE
     Dates: start: 20191101, end: 20191102
  2. BLEPHADEX [Suspect]
     Active Substance: COCONUT OIL\COSMETICS\TEA TREE OIL
     Indication: BLEPHARITIS
     Dates: start: 20191101, end: 20191102

REACTIONS (3)
  - Eye irritation [None]
  - Blindness [None]
  - Visual impairment [None]

NARRATIVE: CASE EVENT DATE: 20191101
